FAERS Safety Report 12620910 (Version 1)
Quarter: 2016Q3

REPORT INFORMATION
  Report Type: Spontaneous
  Country: US (occurrence: None)
  Receive Date: 20160803
  Receipt Date: 20160803
  Transmission Date: 20161109
  Serious: No
  Sender: FDA-Public Use
  Company Number: None

PATIENT
  Sex: Female
  Weight: 52 kg

DRUGS (1)
  1. FOSAPREPITANT, 150 MG [Suspect]
     Active Substance: FOSAPREPITANT
     Indication: ANTIEMETIC SUPPORTIVE CARE
     Route: 042
     Dates: start: 20160722, end: 20160722

REACTIONS (2)
  - Throat tightness [None]
  - Chest pain [None]

NARRATIVE: CASE EVENT DATE: 20160722
